FAERS Safety Report 8921931 (Version 1)
Quarter: 2012Q4

REPORT INFORMATION
  Report Type: Spontaneous
  Country: US (occurrence: None)
  Receive Date: 20121119
  Receipt Date: 20121119
  Transmission Date: 20130627
  Serious: Yes (Life-Threatening)
  Sender: FDA-Public Use
  Company Number: None

PATIENT
  Age: 41 Year
  Sex: Female
  Weight: 89.81 kg

DRUGS (2)
  1. DILANTIN [Suspect]
     Indication: SEIZURE
     Route: 048
  2. AUGMENTIN [Suspect]
     Indication: INFECTION
     Route: 048

REACTIONS (3)
  - Drug reaction with eosinophilia and systemic symptoms [None]
  - Acute hepatic failure [None]
  - Abdominal pain upper [None]
